FAERS Safety Report 7543440-4 (Version None)
Quarter: 2011Q2

REPORT INFORMATION
  Report Type: 
  Country: None (occurrence: None)
  Receive Date: 20110613
  Receipt Date: 20110606
  Transmission Date: 20111010
  Serious: Yes (Other)
  Sender: FDA-Public Use
  Company Number: BR-PFIZER INC-2011122216

PATIENT
  Age: 74 Year
  Sex: Female

DRUGS (3)
  1. OXYCONTIN [Concomitant]
     Dosage: UNK
     Dates: start: 20110501
  2. LYRICA [Suspect]
     Indication: PAIN
     Dosage: 75 MG, TWICE DAILY
     Route: 048
     Dates: start: 20110420
  3. NEO MISTATIN [Concomitant]
     Dosage: UNK
     Dates: start: 20110101

REACTIONS (1)
  - BLOOD PRESSURE INCREASED [None]
